FAERS Safety Report 19692200 (Version 5)
Quarter: 2022Q3

REPORT INFORMATION
  Report Type: Report from Study
  Country: US (occurrence: US)
  Receive Date: 20210812
  Receipt Date: 20220712
  Transmission Date: 20221026
  Serious: Yes (Hospitalization, Disabling, Other)
  Sender: FDA-Public Use
  Company Number: US-SA-2016SA128975

PATIENT
  Age: 70 Year
  Sex: Male

DRUGS (7)
  1. TERIFLUNOMIDE [Suspect]
     Active Substance: TERIFLUNOMIDE
     Indication: Multiple sclerosis
     Dosage: 14 MG, QD
     Route: 048
     Dates: start: 20160616
  2. TERIFLUNOMIDE [Suspect]
     Active Substance: TERIFLUNOMIDE
     Dosage: 14 MG, QD
     Route: 048
     Dates: start: 20170630
  3. TERIFLUNOMIDE [Suspect]
     Active Substance: TERIFLUNOMIDE
     Dosage: 14 MG, QD
     Route: 048
     Dates: start: 20170811
  4. BISACODYL [Suspect]
     Active Substance: BISACODYL
     Dosage: UNK
     Dates: start: 2016
  5. MYRBETRIQ [Concomitant]
     Active Substance: MIRABEGRON
  6. COVID-19 VACCINE [Concomitant]
     Indication: COVID-19 immunisation
     Dosage: UNK
     Dates: start: 20210211, end: 20210304
  7. KAOPECTATE [KAOLIN] [Concomitant]

REACTIONS (50)
  - Cerebrovascular accident [Recovered/Resolved]
  - Pneumonia [Not Recovered/Not Resolved]
  - Influenza [Not Recovered/Not Resolved]
  - Fall [Unknown]
  - Mobility decreased [Unknown]
  - Blindness unilateral [Not Recovered/Not Resolved]
  - COVID-19 [Unknown]
  - Hospitalisation [Unknown]
  - Neoplasm malignant [Not Recovered/Not Resolved]
  - Deafness [Not Recovered/Not Resolved]
  - Impaired driving ability [Unknown]
  - Diabetes mellitus [Unknown]
  - Multiple sclerosis [Not Recovered/Not Resolved]
  - Multiple sclerosis [Not Recovered/Not Resolved]
  - Cerebrovascular accident [Not Recovered/Not Resolved]
  - Fall [Not Recovered/Not Resolved]
  - Fall [Not Recovered/Not Resolved]
  - Asthenia [Not Recovered/Not Resolved]
  - Cystitis [Not Recovered/Not Resolved]
  - Mobility decreased [Not Recovered/Not Resolved]
  - Visual impairment [Not Recovered/Not Resolved]
  - Constipation [Recovered/Resolved]
  - Dyspnoea [Not Recovered/Not Resolved]
  - Pollakiuria [Recovered/Resolved]
  - Gastrointestinal motility disorder [Recovered/Resolved]
  - Feeling abnormal [Not Recovered/Not Resolved]
  - Disorientation [Not Recovered/Not Resolved]
  - Frequent bowel movements [Not Recovered/Not Resolved]
  - Thinking abnormal [Unknown]
  - Abdominal pain upper [Not Recovered/Not Resolved]
  - Post-traumatic stress disorder [Unknown]
  - Sleep apnoea syndrome [Unknown]
  - Bladder disorder [Not Recovered/Not Resolved]
  - Dysgraphia [Unknown]
  - Illness [Unknown]
  - Pain [Not Recovered/Not Resolved]
  - Dizziness [Not Recovered/Not Resolved]
  - Immune system disorder [Not Recovered/Not Resolved]
  - Asthenia [Not Recovered/Not Resolved]
  - Walking aid user [Not Recovered/Not Resolved]
  - Memory impairment [Not Recovered/Not Resolved]
  - Urinary incontinence [Unknown]
  - Pollakiuria [Unknown]
  - Pain [Unknown]
  - Prostatic disorder [Unknown]
  - Intervertebral disc disorder [Unknown]
  - Headache [Unknown]
  - Hypoaesthesia [Unknown]
  - Gait inability [Unknown]
  - Product dose omission issue [Unknown]

NARRATIVE: CASE EVENT DATE: 20170930
